FAERS Safety Report 22278509 (Version 1)
Quarter: 2023Q2

REPORT INFORMATION
  Report Type: Other
  Country: GB (occurrence: None)
  Receive Date: 20230503
  Receipt Date: 20230503
  Transmission Date: 20230721
  Serious: Yes (Congenital Anomaly, Other)
  Sender: FDA-Public Use
  Company Number: GB-ROCHE-3318931

PATIENT
  Age: 57 Year
  Sex: Male
  Weight: 92.2 kg

DRUGS (10)
  1. TOCILIZUMAB [Suspect]
     Active Substance: TOCILIZUMAB
     Indication: Rheumatoid arthritis
     Route: 058
     Dates: start: 202104
  2. LEFLUNOMIDE [Concomitant]
     Active Substance: LEFLUNOMIDE
     Indication: Rheumatoid arthritis
     Route: 048
     Dates: start: 201405
  3. CLOPIDOGREL [Concomitant]
     Active Substance: CLOPIDOGREL BISULFATE
     Route: 048
  4. GABAPENTIN [Concomitant]
     Active Substance: GABAPENTIN
  5. LANSOPRAZOLE [Concomitant]
     Active Substance: LANSOPRAZOLE
  6. BISOPROLOL [Concomitant]
     Active Substance: BISOPROLOL
  7. ATORVASTATIN [Concomitant]
     Active Substance: ATORVASTATIN
  8. RAMIPRIL [Concomitant]
     Active Substance: RAMIPRIL
  9. NAPROXEN [Concomitant]
     Active Substance: NAPROXEN
  10. ACETAMINOPHEN [Concomitant]
     Active Substance: ACETAMINOPHEN

REACTIONS (2)
  - Neoplasm [Unknown]
  - Parotid gland enlargement [Recovered/Resolved]
